FAERS Safety Report 5115185-1 (Version None)
Quarter: 2006Q3

REPORT INFORMATION
  Report Type: 
  Country: None (occurrence: None)
  Receive Date: 20060922
  Receipt Date: 20060810
  Transmission Date: 20061208
  Serious: Yes (Hospitalization, Other)
  Sender: FDA-Public Use
  Company Number: 2005126008

PATIENT
  Age: 74 Year
  Sex: Male
  Weight: 96.6162 kg

DRUGS (3)
  1. CELEBREX [Suspect]
     Indication: DRUG USE FOR UNKNOWN INDICATION
  2. VIOXX [Suspect]
     Indication: DRUG USE FOR UNKNOWN INDICATION
  3. COLCHICUM JTL LIQ [Concomitant]

REACTIONS (8)
  - ASPIRATION [None]
  - BLOOD PRESSURE INCREASED [None]
  - CEREBRAL HAEMORRHAGE [None]
  - CEREBRAL INFARCTION [None]
  - CEREBROVASCULAR ACCIDENT [None]
  - HYDROCEPHALUS [None]
  - RESPIRATORY FAILURE [None]
  - SUBDURAL HAEMATOMA [None]
